FAERS Safety Report 16476434 (Version 1)
Quarter: 2019Q2

REPORT INFORMATION
  Report Type: Spontaneous
  Country: GR (occurrence: GR)
  Receive Date: 20190626
  Receipt Date: 20190626
  Transmission Date: 20190711
  Serious: Yes (Other)
  Sender: FDA-Public Use
  Company Number: PHHY2019GR144542

PATIENT
  Sex: Female

DRUGS (6)
  1. MIDOSTAURIN [Suspect]
     Active Substance: MIDOSTAURIN
     Dosage: 75 MG, BID (FOR 15 DAYS)
     Route: 065
  2. MIDOSTAURIN [Suspect]
     Active Substance: MIDOSTAURIN
     Dosage: 100 MG, BID
     Route: 065
  3. MIDOSTAURIN [Suspect]
     Active Substance: MIDOSTAURIN
     Dosage: 50 MG, BID
     Route: 065
  4. MIDOSTAURIN [Suspect]
     Active Substance: MIDOSTAURIN
     Dosage: 50 MG, BID (FOR 7 DAYS)
     Route: 065
  5. MIDOSTAURIN [Suspect]
     Active Substance: MIDOSTAURIN
     Indication: SYSTEMIC MASTOCYTOSIS
     Dosage: 25 MG, BID (FOR 7 DAYS)
     Route: 065
     Dates: start: 20180511
  6. MIDOSTAURIN [Suspect]
     Active Substance: MIDOSTAURIN
     Dosage: 50 MG, BID (FOR 7 DAYS)
     Route: 065

REACTIONS (14)
  - Neurotoxicity [Unknown]
  - Concomitant disease aggravated [Unknown]
  - Weight decreased [Unknown]
  - Hypothyroidism [Unknown]
  - Ascites [Unknown]
  - Dyspnoea [Unknown]
  - Discomfort [Unknown]
  - Eating disorder [Unknown]
  - Feeling abnormal [Unknown]
  - Abdominal mass [Unknown]
  - Hepatomegaly [Unknown]
  - Movement disorder [Unknown]
  - Hypoaesthesia [Unknown]
  - Depression [Unknown]
